FAERS Safety Report 14684340 (Version 4)
Quarter: 2018Q2

REPORT INFORMATION
  Report Type: Report from Study
  Country: US (occurrence: US)
  Receive Date: 20180327
  Receipt Date: 20180626
  Transmission Date: 20180711
  Serious: Yes (Other)
  Sender: FDA-Public Use
  Company Number: US-PFIZER INC-2018004851

PATIENT
  Age: 62 Year
  Sex: Female

DRUGS (2)
  1. IBRANCE [Suspect]
     Active Substance: PALBOCICLIB
     Indication: BREAST CANCER FEMALE
     Dosage: 125 MG, DAILY
     Route: 048
     Dates: start: 20171231
  2. IBRANCE [Suspect]
     Active Substance: PALBOCICLIB
     Dosage: 125 MG, CYCLIC (DAILY-21ON, 7 OFF)
     Route: 048
     Dates: start: 20171231

REACTIONS (9)
  - Fatigue [Unknown]
  - Leukopenia [Unknown]
  - Oedema peripheral [Unknown]
  - Peripheral arterial occlusive disease [Unknown]
  - Epistaxis [Unknown]
  - Nausea [Unknown]
  - Bone marrow failure [Unknown]
  - Dyspepsia [Unknown]
  - Chills [Unknown]

NARRATIVE: CASE EVENT DATE: 2018
